FAERS Safety Report 9145740 (Version 1)
Quarter: 2013Q1

REPORT INFORMATION
  Report Type: Spontaneous
  Country: US (occurrence: None)
  Receive Date: 20130227
  Receipt Date: 20130227
  Transmission Date: 20140127
  Serious: Yes (Other)
  Sender: FDA-Public Use
  Company Number: None

PATIENT
  Age: 45 Year
  Sex: Female
  Weight: 52.16 kg

DRUGS (1)
  1. ATOVAQUONE + PROGUANIL HYDROCHLORIDE [Suspect]
     Dosage: 1 PILL PER DAY PO
     Route: 048
     Dates: start: 20121216, end: 20121225

REACTIONS (3)
  - Extrasystoles [None]
  - Cardiac discomfort [None]
  - Cardiac disorder [None]
